FAERS Safety Report 26103682 (Version 1)
Quarter: 2025Q4

REPORT INFORMATION
  Report Type: Spontaneous
  Country: CA (occurrence: CA)
  Receive Date: 20251129
  Receipt Date: 20251129
  Transmission Date: 20260118
  Serious: Yes (Other)
  Sender: AUROBINDO
  Company Number: CA-AUROBINDO-AUR-APL-2024-051120

PATIENT
  Age: 68 Year
  Sex: Male

DRUGS (3)
  1. PIRFENIDONE [Suspect]
     Active Substance: PIRFENIDONE
     Indication: Pulmonary fibrosis
     Dosage: 267 MILLIGRAM, TWO TIMES A DAY (2 EVERY 1 DAYS)
  2. PIRFENIDONE [Suspect]
     Active Substance: PIRFENIDONE
     Dosage: 801 MILLIGRAM
  3. PIRFENIDONE [Suspect]
     Active Substance: PIRFENIDONE
     Indication: Pulmonary fibrosis
     Dosage: 534 MILLIGRAM, TWO TIMES A DAY (2 EVERY 1 DAYS)

REACTIONS (3)
  - Pneumomediastinum [Unknown]
  - Transplant [Unknown]
  - Off label use [Unknown]
